FAERS Safety Report 5838729-0 (Version None)
Quarter: 2008Q3

REPORT INFORMATION
  Report Type: 
  Country: None (occurrence: None)
  Receive Date: 20080808
  Receipt Date: 20080807
  Transmission Date: 20090109
  Serious: Yes (Hospitalization)
  Sender: FDA-Public Use
  Company Number: B0532380A

PATIENT
  Age: 1 Year
  Sex: Male

DRUGS (5)
  1. SAWACILLIN [Suspect]
     Indication: PNEUMONIA
     Dosage: 100MG THREE TIMES PER DAY
     Route: 048
     Dates: start: 20080720, end: 20080722
  2. ASVERIN [Suspect]
     Indication: PNEUMONIA
     Route: 048
     Dates: start: 20080720, end: 20080722
  3. MUCODYNE [Suspect]
     Indication: PNEUMONIA
     Dosage: 250MG PER DAY
     Route: 048
     Dates: start: 20080720, end: 20080722
  4. MEPTIN [Suspect]
     Indication: PNEUMONIA
     Dosage: 5MG THREE TIMES PER DAY
     Route: 048
     Dates: start: 20080720, end: 20080722
  5. PERIACTIN [Suspect]
     Indication: PNEUMONIA
     Dosage: .4MG THREE TIMES PER DAY
     Route: 048
     Dates: start: 20080720, end: 20080722

REACTIONS (1)
  - NEUTROPENIA [None]
